FAERS Safety Report 7017822-3 (Version None)
Quarter: 2010Q3

REPORT INFORMATION
  Report Type: 
  Country: None (occurrence: None)
  Receive Date: 20100928
  Receipt Date: 20100923
  Transmission Date: 20110219
  Serious: Yes (Death, Life-Threatening)
  Sender: FDA-Public Use
  Company Number: NL-NOVOPROD-315366

PATIENT
  Age: 60 Year
  Sex: Female
  Weight: 119 kg

DRUGS (6)
  1. VICTOZA [Suspect]
     Indication: TYPE 2 DIABETES MELLITUS
     Dosage: 1.8 MG, QD
     Dates: start: 20100329, end: 20100913
  2. METFORMIN [Suspect]
     Dosage: 1000 MG, BID
     Dates: start: 20031211, end: 20100913
  3. VALSARTAN [Concomitant]
     Dosage: 160 MG, QD
  4. ENALAPRIL MALEATE [Concomitant]
     Dosage: 20 MG, QD
     Route: 048
  5. DIGOXIN [Concomitant]
     Dosage: 0.125 MG, QD
     Route: 048
  6. FUROSEMIDE [Concomitant]
     Dosage: 40 MG, BID

REACTIONS (1)
  - LACTIC ACIDOSIS [None]
